FAERS Safety Report 25348905 (Version 1)
Quarter: 2025Q2

REPORT INFORMATION
  Report Type: Spontaneous
  Country: US (occurrence: US)
  Receive Date: 20250522
  Receipt Date: 20250522
  Transmission Date: 20250717
  Serious: Yes (Other)
  Sender: COOPERSURGICAL
  Company Number: US-COOPERSURGICAL, INC.-2025CPS004049

PATIENT
  Age: 43 Year
  Sex: Female
  Weight: 66.667 kg

DRUGS (2)
  1. PARAGARD T 380A [Suspect]
     Active Substance: COPPER
     Route: 015
     Dates: start: 20190211
  2. ZOLOFT [Concomitant]
     Active Substance: SERTRALINE HYDROCHLORIDE
     Dates: start: 201004, end: 202211

REACTIONS (7)
  - Endometrial ablation [Recovered/Resolved]
  - Loop electrosurgical excision procedure [Recovered/Resolved]
  - Depression [Unknown]
  - Vulvovaginal discomfort [Unknown]
  - Abnormal uterine bleeding [Unknown]
  - Vaginal discharge [Unknown]
  - Vulvovaginal mycotic infection [Unknown]

NARRATIVE: CASE EVENT DATE: 20190629
